FAERS Safety Report 17734828 (Version 1)
Quarter: 2020Q2

REPORT INFORMATION
  Report Type: Spontaneous
  Country: US (occurrence: US)
  Receive Date: 20200501
  Receipt Date: 20200501
  Transmission Date: 20200714
  Serious: No
  Sender: FDA-Public Use
  Company Number: US-RADIUS HEALTH INC.-2020US000558

PATIENT
  Sex: Female

DRUGS (3)
  1. INSULIN [Concomitant]
     Active Substance: INSULIN NOS
     Indication: DIABETES MELLITUS
     Dosage: INFUSION PUMP
  2. TYMLOS [Suspect]
     Active Substance: ABALOPARATIDE
     Indication: OSTEOPOROSIS POSTMENOPAUSAL
     Dosage: 80 MCG, QD
     Route: 058
  3. TYMLOS [Suspect]
     Active Substance: ABALOPARATIDE
     Indication: OSTEOPOROSIS

REACTIONS (7)
  - Muscle spasms [Recovered/Resolved]
  - Blood sodium decreased [Recovered/Resolved]
  - Wrong technique in product usage process [Recovered/Resolved]
  - Product quality issue [Unknown]
  - Headache [Recovered/Resolved]
  - Intentional dose omission [Recovered/Resolved]
  - Visual impairment [Unknown]
